FAERS Safety Report 6968951-1 (Version None)
Quarter: 2010Q3

REPORT INFORMATION
  Report Type: 
  Country: None (occurrence: None)
  Receive Date: 20100907
  Receipt Date: 20100819
  Transmission Date: 20110219
  Serious: Yes (Hospitalization)
  Sender: FDA-Public Use
  Company Number: US-BAYER-201012900NA

PATIENT
  Age: 40 Year
  Sex: Female
  Weight: 82 kg

DRUGS (9)
  1. YASMIN [Suspect]
     Indication: PREMENSTRUAL SYNDROME
     Route: 048
     Dates: start: 20080601, end: 20080801
  2. OCELLA [Suspect]
     Indication: PREMENSTRUAL SYNDROME
     Route: 048
     Dates: start: 20080601, end: 20080801
  3. YAZ [Suspect]
     Indication: CONTRACEPTION
     Route: 065
     Dates: start: 20080601
  4. ASCORBIC ACID [Concomitant]
     Dosage: IF SICK
     Route: 065
  5. NSAIDS [Concomitant]
     Route: 065
  6. MUSCLE RELAXANT [Concomitant]
  7. PAIN MEDICATION [Concomitant]
  8. LASIX [Concomitant]
  9. LORTAB [Concomitant]

REACTIONS (4)
  - DEEP VEIN THROMBOSIS [None]
  - OEDEMA PERIPHERAL [None]
  - PAIN [None]
  - PAIN IN EXTREMITY [None]
